APPROVED DRUG PRODUCT: LEVOCETIRIZINE DIHYDROCHLORIDE
Active Ingredient: LEVOCETIRIZINE DIHYDROCHLORIDE
Strength: 2.5MG/5ML
Dosage Form/Route: SOLUTION;ORAL
Application: A202673 | Product #001
Applicant: TARO PHARMACEUTICAL INDUSTRIES LTD
Approved: Jul 26, 2013 | RLD: No | RS: No | Type: DISCN